FAERS Safety Report 5704765-8 (Version None)
Quarter: 2008Q2

REPORT INFORMATION
  Report Type: 
  Country: None (occurrence: None)
  Receive Date: 20080414
  Receipt Date: 20080402
  Transmission Date: 20081010
  Serious: Yes (Other)
  Sender: FDA-Public Use
  Company Number: CA-GENENTECH-241977

PATIENT
  Sex: Female
  Weight: 84 kg

DRUGS (20)
  1. METHOTREXATE [Suspect]
     Indication: RHEUMATOID ARTHRITIS
     Dosage: UNK, BID
     Route: 042
     Dates: start: 20061123
  2. BLINDED PLACEBO [Suspect]
     Indication: RHEUMATOID ARTHRITIS
     Dosage: UNK, BID
     Route: 042
     Dates: start: 20061123
  3. BLINDED RITUXIMAB [Suspect]
     Indication: RHEUMATOID ARTHRITIS
     Dosage: UNK, BID
     Route: 042
     Dates: start: 20061123
  4. METHOTREXATE [Suspect]
     Indication: RHEUMATOID ARTHRITIS
     Dosage: 25 MG, UNK
     Route: 048
     Dates: start: 20060828
  5. FOLIC ACID [Suspect]
     Indication: RHEUMATOID ARTHRITIS
     Dosage: 5 MG, QD
     Route: 048
     Dates: start: 19970214
  6. AMITRIPTYLINE HCL [Concomitant]
     Indication: DRUG USE FOR UNKNOWN INDICATION
     Dosage: 50 MG, UNK
     Dates: start: 19951228
  7. OMEPRAZOLE [Concomitant]
     Indication: DRUG USE FOR UNKNOWN INDICATION
     Dosage: 20 MG, UNK
     Dates: start: 20010213
  8. PAROXETINE HCL [Concomitant]
     Indication: DRUG USE FOR UNKNOWN INDICATION
     Dosage: 20 MG, UNK
     Dates: start: 20041027
  9. CELECOXIB [Concomitant]
     Indication: DRUG USE FOR UNKNOWN INDICATION
     Dosage: 200 MG, UNK
     Dates: start: 19990426
  10. FLONASE [Concomitant]
     Indication: DRUG USE FOR UNKNOWN INDICATION
     Dosage: 50 MG, UNK
     Dates: start: 20060501
  11. NOVO-SEMIDE [Concomitant]
     Indication: DRUG USE FOR UNKNOWN INDICATION
     Dosage: 20 MG, UNK
     Dates: start: 20060501
  12. VITAMIN D3 [Concomitant]
     Indication: DRUG USE FOR UNKNOWN INDICATION
     Dosage: 400 IU, UNK
     Dates: start: 20051115
  13. VITAMIN A [Concomitant]
     Indication: DRUG USE FOR UNKNOWN INDICATION
     Dosage: 10000 IU, UNK
     Dates: start: 20051115
  14. VITAMIN B-12 [Concomitant]
     Indication: DRUG USE FOR UNKNOWN INDICATION
     Dosage: 50 A?G, UNK
     Dates: start: 20051115
  15. POTASSIUM CHLORIDE [Concomitant]
     Indication: DRUG USE FOR UNKNOWN INDICATION
     Dosage: 50 MG, UNK
     Dates: start: 20051115
  16. VITAMIN B6 [Concomitant]
     Indication: DRUG USE FOR UNKNOWN INDICATION
     Dosage: 50 MG, UNK
     Dates: start: 20051115
  17. ASCORBIC ACID [Concomitant]
     Indication: DRUG USE FOR UNKNOWN INDICATION
     Dosage: 1000 MG, UNK
     Dates: start: 20051115
  18. CHROMIUM [Concomitant]
     Indication: DRUG USE FOR UNKNOWN INDICATION
     Dosage: 200 A?G, UNK
     Dates: start: 20051115
  19. MAGNESIUM [Concomitant]
     Indication: DRUG USE FOR UNKNOWN INDICATION
     Dosage: 250 MG, UNK
     Dates: start: 20051115
  20. ATACAND HCT [Concomitant]
     Indication: DRUG USE FOR UNKNOWN INDICATION
     Dosage: 1 TABLET, UNK
     Dates: start: 20070228

REACTIONS (1)
  - MYOCARDIAL INFARCTION [None]
